FAERS Safety Report 22047552 (Version 2)
Quarter: 2023Q2

REPORT INFORMATION
  Report Type: Other
  Country: FR (occurrence: FR)
  Receive Date: 20230301
  Receipt Date: 20230419
  Transmission Date: 20230721
  Serious: Yes (Death)
  Sender: FDA-Public Use
  Company Number: None

PATIENT

DRUGS (1)
  1. TRAMADOL [Suspect]
     Active Substance: TRAMADOL
     Indication: Pain
     Dosage: UNK
     Route: 048
     Dates: start: 20220201, end: 20230130

REACTIONS (3)
  - Brain oedema [Fatal]
  - Coma [Fatal]
  - Overdose [Fatal]

NARRATIVE: CASE EVENT DATE: 20230130
